FAERS Safety Report 8925315 (Version 1)
Quarter: 2012Q4

REPORT INFORMATION
  Report Type: Report from Study
  Country: JP (occurrence: JP)
  Receive Date: 20121126
  Receipt Date: 20121126
  Transmission Date: 20130627
  Serious: Yes (Other)
  Sender: FDA-Public Use
  Company Number: JP-VERTEX PHARMACEUTICAL INC.-AE-2012-003441

PATIENT
  Age: 68 Year
  Sex: Male

DRUGS (15)
  1. VX-950 (TELAPREVIR) [Suspect]
     Indication: HEPATITIS C
     Dosage: 2250 mg, qd
     Route: 048
     Dates: start: 20120111, end: 20120131
  2. VX-950 (TELAPREVIR) [Suspect]
     Dosage: 1500 mg, qd
     Route: 048
     Dates: start: 20120201, end: 20120228
  3. VX-950 (TELAPREVIR) [Suspect]
     Dosage: 1000 mg, qd
     Route: 048
     Dates: start: 20120229, end: 20120306
  4. VX-950 (TELAPREVIR) [Suspect]
     Dosage: 750 mg, qd
     Dates: start: 20120307, end: 20120324
  5. PEGINTERFERON ALFA-2B [Suspect]
     Indication: CHRONIC HEPATITIS C
     Dosage: 1.5 ?g/kg, qw
     Route: 058
     Dates: start: 20120111, end: 20120222
  6. PEGINTERFERON ALFA-2B [Suspect]
     Dosage: 0.9 ?g/kg, qw
     Route: 058
     Dates: start: 20120229, end: 20120321
  7. RIBAVIRIN [Suspect]
     Indication: CHRONIC HEPATITIS C
     Dosage: 800 mg, qd
     Route: 048
     Dates: start: 20120111, end: 20120124
  8. RIBAVIRIN [Suspect]
     Dosage: 600 mg, qd
     Route: 048
     Dates: start: 20120125, end: 20120131
  9. RIBAVIRIN [Suspect]
     Dosage: 200 mg, qd
     Route: 048
     Dates: start: 20120201, end: 20120324
  10. LAMISIL [Concomitant]
     Dosage: UNK, prn
     Route: 061
     Dates: start: 20120125
  11. ITOROL [Concomitant]
     Route: 048
  12. DIOVAN [Concomitant]
     Dosage: 160 mg, qd
     Route: 048
  13. ADALAT-CR [Concomitant]
     Dosage: 20 mg, qd
     Route: 048
  14. DEPAS [Concomitant]
     Dosage: UNK, prn
     Route: 048
  15. MUCOSTA [Concomitant]
     Dosage: 300 mg, qd
     Route: 048
     Dates: start: 20120111, end: 20120328

REACTIONS (1)
  - Retinopathy [Recovered/Resolved]
